FAERS Safety Report 15103715 (Version 2)
Quarter: 2018Q4

REPORT INFORMATION
  Report Type: Spontaneous
  Country: US (occurrence: US)
  Receive Date: 20180703
  Receipt Date: 20181001
  Transmission Date: 20190204
  Serious: No
  Sender: FDA-Public Use
  Company Number: US-AVEDRO-AVE-2018-0115-AE

PATIENT
  Age: 25 Year
  Sex: Male

DRUGS (6)
  1. ACUVUE OASYS BANDAGE CONTACT LENS [Suspect]
     Active Substance: DEVICE
     Indication: PRODUCT USED FOR UNKNOWN INDICATION
     Dosage: 8.4 BC -0.50 POWER
     Route: 047
     Dates: start: 201803
  2. POLYTRIM [Suspect]
     Active Substance: POLYMYXIN B SULFATE\TRIMETHOPRIM SULFATE
     Indication: PRODUCT USED FOR UNKNOWN INDICATION
     Dosage: 4 TIMES DAILY FOR 2 DAYS
     Route: 047
     Dates: start: 201803
  3. PREDNISOLONE ACETATE. [Suspect]
     Active Substance: PREDNISOLONE ACETATE
     Indication: PRODUCT USED FOR UNKNOWN INDICATION
     Dosage: 4 TIMES DAILY FOR 2 DAYS
     Route: 047
     Dates: start: 201803
  4. PHOTREXA VISCOUS [Suspect]
     Active Substance: RIBOFLAVIN 5^-PHOSPHATE SODIUM
     Indication: KERATOCONUS
     Route: 047
     Dates: start: 20180307, end: 20180307
  5. PHOTREXA [Suspect]
     Active Substance: RIBOFLAVIN 5^-PHOSPHATE SODIUM
     Indication: KERATOCONUS
     Route: 047
     Dates: start: 20180307, end: 20180307
  6. KXL SYSTEM [Suspect]
     Active Substance: DEVICE
     Indication: KERATOCONUS
     Route: 047
     Dates: start: 20180307, end: 20180307

REACTIONS (4)
  - Inappropriate schedule of product administration [Unknown]
  - Post procedural infection [Recovered/Resolved with Sequelae]
  - Corneal scar [Recovered/Resolved with Sequelae]
  - Neovascularisation [Unknown]

NARRATIVE: CASE EVENT DATE: 20180307
